FAERS Safety Report 25595843 (Version 1)
Quarter: 2025Q3

REPORT INFORMATION
  Report Type: Spontaneous
  Country: EU (occurrence: EU)
  Receive Date: 20250723
  Receipt Date: 20250723
  Transmission Date: 20251020
  Serious: Yes (Death, Other)
  Sender: MERCK SHARP & DOHME LLC
  Company Number: None

PATIENT
  Age: 82 Year
  Sex: Female

DRUGS (1)
  1. KEYTRUDA [Suspect]
     Active Substance: PEMBROLIZUMAB
     Indication: Non-small cell lung cancer stage IV
     Route: 042
     Dates: start: 20250521, end: 20250610

REACTIONS (2)
  - Immune-mediated myasthenia gravis [Fatal]
  - Immune-mediated myocarditis [Fatal]

NARRATIVE: CASE EVENT DATE: 20250617
